FAERS Safety Report 5478800-9 (Version None)
Quarter: 2007Q4

REPORT INFORMATION
  Report Type: 
  Country: None (occurrence: None)
  Receive Date: 20071002
  Receipt Date: 20070921
  Transmission Date: 20080405
  Serious: Yes (Hospitalization)
  Sender: FDA-Public Use
  Company Number: 2007US001610

PATIENT
  Age: 16 Year
  Sex: Male

DRUGS (6)
  1. TACROLIMUS [Suspect]
     Indication: RENAL TRANSPLANT
     Dosage: 0.5 MG, WEEKLY: 0.4 MG, WEEKLY: 4 MG, WEEKLY: 4 MG, TOTAL DOSE: 5 MG ,TOTAL DOSE
     Route: 048
     Dates: start: 20060701, end: 20061201
  2. TACROLIMUS [Suspect]
     Indication: RENAL TRANSPLANT
     Dosage: 0.5 MG, WEEKLY: 0.4 MG, WEEKLY: 4 MG, WEEKLY: 4 MG, TOTAL DOSE: 5 MG ,TOTAL DOSE
     Route: 048
     Dates: start: 20061201, end: 20070524
  3. TACROLIMUS [Suspect]
     Indication: RENAL TRANSPLANT
     Dosage: 0.5 MG, WEEKLY: 0.4 MG, WEEKLY: 4 MG, WEEKLY: 4 MG, TOTAL DOSE: 5 MG ,TOTAL DOSE
     Route: 048
     Dates: start: 20070524, end: 20070707
  4. TACROLIMUS [Suspect]
     Indication: RENAL TRANSPLANT
     Dosage: 0.5 MG, WEEKLY: 0.4 MG, WEEKLY: 4 MG, WEEKLY: 4 MG, TOTAL DOSE: 5 MG ,TOTAL DOSE
     Route: 048
     Dates: start: 20070712, end: 20070712
  5. TACROLIMUS [Suspect]
     Indication: RENAL TRANSPLANT
     Dosage: 0.5 MG, WEEKLY: 0.4 MG, WEEKLY: 4 MG, WEEKLY: 4 MG, TOTAL DOSE: 5 MG ,TOTAL DOSE
     Route: 048
     Dates: start: 20070719, end: 20070719
  6. OTHER ANTIVIRALS [Concomitant]

REACTIONS (8)
  - ACIDOSIS [None]
  - DRUG DISPENSING ERROR [None]
  - DRUG LEVEL INCREASED [None]
  - HYPERGLYCAEMIA [None]
  - HYPERKALAEMIA [None]
  - INCORRECT DOSE ADMINISTERED [None]
  - KIDNEY TRANSPLANT REJECTION [None]
  - RENAL FAILURE ACUTE [None]
